FAERS Safety Report 16772846 (Version 1)
Quarter: 2019Q3

REPORT INFORMATION
  Report Type: Spontaneous
  Country: SE (occurrence: SE)
  Receive Date: 20190904
  Receipt Date: 20190904
  Transmission Date: 20191005
  Serious: Yes (Hospitalization)
  Sender: FDA-Public Use
  Company Number: SE-ALLERGAN-1935981US

PATIENT
  Sex: Female

DRUGS (5)
  1. FLUOXETIN [Concomitant]
     Active Substance: FLUOXETINE HYDROCHLORIDE
  2. MELATONIN [Concomitant]
     Active Substance: MELATONIN
  3. TRIPTORELIN PAMOATE - BP [Suspect]
     Active Substance: TRIPTORELIN PAMOATE
     Indication: GENDER DYSPHORIA
     Dosage: 3.75 MG, Q MONTH
     Route: 030
     Dates: start: 20181015
  4. THERALEN [Concomitant]
     Active Substance: TRIMEPRAZINE
     Dosage: 1 DF, PRN
  5. DIVISUN [Concomitant]
     Active Substance: CHOLECALCIFEROL

REACTIONS (3)
  - Depression [Not Recovered/Not Resolved]
  - Suicidal ideation [Not Recovered/Not Resolved]
  - Off label use [Unknown]

NARRATIVE: CASE EVENT DATE: 20181128
